FAERS Safety Report 6758444-9 (Version None)
Quarter: 2010Q2

REPORT INFORMATION
  Report Type: 
  Country: None (occurrence: None)
  Receive Date: 20100607
  Receipt Date: 20100527
  Transmission Date: 20101027
  Serious: Yes (Other)
  Sender: FDA-Public Use
  Company Number: A0861720A

PATIENT
  Age: 63 Year
  Sex: Female

DRUGS (10)
  1. TYKERB [Suspect]
     Indication: BREAST CANCER
     Dosage: 250MG FIVE TIMES PER DAY
     Route: 048
     Dates: start: 20100507
  2. XELODA [Concomitant]
  3. UNKNOWN DRUG [Concomitant]
  4. PRAVASTATIN [Concomitant]
  5. PROCHLORPERAZINE [Concomitant]
  6. MELOXICAM [Concomitant]
  7. HYDROMORPHONE HCL [Concomitant]
  8. PROZAC [Concomitant]
  9. FEMARA [Concomitant]
  10. HERCEPTIN [Concomitant]
     Route: 042

REACTIONS (8)
  - CHROMATURIA [None]
  - CONVULSION [None]
  - DECREASED APPETITE [None]
  - DEHYDRATION [None]
  - FALL [None]
  - FATIGUE [None]
  - MUSCULAR WEAKNESS [None]
  - PARAESTHESIA [None]
